FAERS Safety Report 7205631-1 (Version None)
Quarter: 2010Q4

REPORT INFORMATION
  Report Type: 
  Country: None (occurrence: None)
  Receive Date: 20101231
  Receipt Date: 20101217
  Transmission Date: 20110411
  Serious: No
  Sender: FDA-Public Use
  Company Number: US-PFIZER INC-2010175776

PATIENT
  Age: 80 Year
  Sex: Female
  Weight: 149.66 kg

DRUGS (3)
  1. ADVIL [Suspect]
     Indication: ARTHRITIS
     Dosage: ONE TABLET 4X/DAY
     Route: 048
     Dates: start: 20101001
  2. LIPITOR [Concomitant]
  3. BENICAR [Concomitant]

REACTIONS (1)
  - DRUG EFFECT DELAYED [None]
